FAERS Safety Report 20247187 (Version 2)
Quarter: 2025Q2

REPORT INFORMATION
  Report Type: Report from Study
  Country: ES (occurrence: ES)
  Receive Date: 20211229
  Receipt Date: 20250630
  Transmission Date: 20250717
  Serious: Yes (Death, Hospitalization, Other)
  Sender: MYLAN
  Company Number: None

PATIENT
  Age: 26 Year
  Sex: Female

DRUGS (16)
  1. ACETAMINOPHEN [Suspect]
     Active Substance: ACETAMINOPHEN
     Indication: Product used for unknown indication
  2. ACETAMINOPHEN [Suspect]
     Active Substance: ACETAMINOPHEN
     Route: 065
  3. ACETAMINOPHEN [Suspect]
     Active Substance: ACETAMINOPHEN
     Route: 065
  4. ACETAMINOPHEN [Suspect]
     Active Substance: ACETAMINOPHEN
  5. NAPROXEN [Suspect]
     Active Substance: NAPROXEN
     Indication: Product used for unknown indication
     Dates: start: 20200127, end: 20200127
  6. NAPROXEN [Suspect]
     Active Substance: NAPROXEN
     Route: 065
     Dates: start: 20200127, end: 20200127
  7. NAPROXEN [Suspect]
     Active Substance: NAPROXEN
     Route: 065
     Dates: start: 20200127, end: 20200127
  8. NAPROXEN [Suspect]
     Active Substance: NAPROXEN
     Dates: start: 20200127, end: 20200127
  9. METAMIZOL [Suspect]
     Active Substance: METAMIZOLE SODIUM
     Indication: Product used for unknown indication
     Dates: start: 20200127, end: 20200127
  10. METAMIZOL [Suspect]
     Active Substance: METAMIZOLE SODIUM
     Route: 065
     Dates: start: 20200127, end: 20200127
  11. METAMIZOL [Suspect]
     Active Substance: METAMIZOLE SODIUM
     Route: 065
     Dates: start: 20200127, end: 20200127
  12. METAMIZOL [Suspect]
     Active Substance: METAMIZOLE SODIUM
     Dates: start: 20200127, end: 20200127
  13. DIAZEPAM [Suspect]
     Active Substance: DIAZEPAM
     Indication: Product used for unknown indication
     Dates: start: 20200127, end: 20200127
  14. DIAZEPAM [Suspect]
     Active Substance: DIAZEPAM
     Route: 065
     Dates: start: 20200127, end: 20200127
  15. DIAZEPAM [Suspect]
     Active Substance: DIAZEPAM
     Route: 065
     Dates: start: 20200127, end: 20200127
  16. DIAZEPAM [Suspect]
     Active Substance: DIAZEPAM
     Dates: start: 20200127, end: 20200127

REACTIONS (3)
  - Hepatic failure [Fatal]
  - Intentional overdose [Fatal]
  - Suicide attempt [Unknown]

NARRATIVE: CASE EVENT DATE: 20200127
